FAERS Safety Report 9275943 (Version 1)
Quarter: 2012Q4

REPORT INFORMATION
  Report Type: Spontaneous
  Country: SG (occurrence: None)
  Receive Date: 20121109
  Receipt Date: 20121109
  Transmission Date: 20130627
  Serious: Yes (Other)
  Sender: FDA-Public Use
  Company Number: 2012S1000162

PATIENT
  Age: 57 Year
  Sex: Male

DRUGS (2)
  1. CUBICIN (DAPTOMYCIN) [Suspect]
     Indication: STAPHYLOCOCCAL BACTEREMIA
     Route: 042
  2. VAMCOMYCIN [Concomitant]

REACTIONS (1)
  - Acute generalised exanthematous pustulosis [None]
